FAERS Safety Report 9607525 (Version 2)
Quarter: 2014Q4

REPORT INFORMATION
  Report Type: Spontaneous
  Country: US (occurrence: None)
  Receive Date: 20131007
  Receipt Date: 20141009
  Transmission Date: 20150529
  Serious: Yes (Death, Hospitalization)
  Sender: FDA-Public Use
  Company Number: AMAG201300165

PATIENT
  Age: 66 Year
  Sex: Female
  Weight: 102.6 kg

DRUGS (13)
  1. SPIRONALACTONE (SPIRONOLACTONE) [Concomitant]
  2. FERROUS SULFATE [Concomitant]
     Active Substance: FERROUS SULFATE\FERROUS SULFATE, DRIED
  3. NEURONTIN [Concomitant]
     Active Substance: GABAPENTIN
  4. LACTULOSE (LACTULOSE) [Concomitant]
     Active Substance: LACTULOSE
  5. FERAHEME [Suspect]
     Active Substance: FERUMOXYTOL NON-STOICHIOMETRIC MAGNETITE
     Dosage: 200 MG, PM, INTRAVENOUS
     Route: 042
     Dates: start: 20130910, end: 20130910
  6. SOLUMEDROL (METHYLPRODNISOLONE SODIUM SUCCINATE) [Concomitant]
  7. RIFAXIMIN (RIFAXIMIN) [Concomitant]
  8. OMEPRAZOLE (OMEPRAZOLE) [Concomitant]
     Active Substance: OMEPRAZOLE
  9. KLOR-CON [Suspect]
     Active Substance: POTASSIUM CHLORIDE
  10. DECADRON (DEXAMETHASONE ACETATE) [Concomitant]
  11. LASIX [Concomitant]
     Active Substance: FUROSEMIDE
  12. MULTIVITAMIN (VITAMINS NOS) [Concomitant]
     Active Substance: VITAMINS
  13. BENADRYL (DIPHENHYDRAMINE HYDDROCHLORIDE) [Concomitant]

REACTIONS (3)
  - Cellulitis [None]
  - Septic shock [None]
  - Pleural effusion [None]

NARRATIVE: CASE EVENT DATE: 20130915
